FAERS Safety Report 6326484-X (Version None)
Quarter: 2009Q3

REPORT INFORMATION
  Report Type: 
  Country: None (occurrence: None)
  Receive Date: 20090825
  Receipt Date: 20070606
  Transmission Date: 20100115
  Serious: Yes (Other)
  Sender: FDA-Public Use
  Company Number: US-ASTRAZENECA-2006UW24297

PATIENT
  Age: 15914 Day
  Sex: Male
  Weight: 93 kg

DRUGS (17)
  1. SEROQUEL [Suspect]
     Indication: SCHIZOPHRENIA
     Route: 048
     Dates: start: 20020603
  2. SEROQUEL [Suspect]
     Indication: BIPOLAR DISORDER
     Route: 048
     Dates: start: 20020603
  3. SEROQUEL [Suspect]
     Indication: DEPRESSION
     Route: 048
     Dates: start: 20020603
  4. SEROQUEL [Suspect]
     Route: 048
  5. SEROQUEL [Suspect]
     Route: 048
  6. SEROQUEL [Suspect]
     Route: 048
  7. ABILIFY [Concomitant]
  8. RISPERDAL [Concomitant]
  9. THORAZINE [Concomitant]
     Dates: start: 19970101, end: 20070101
  10. THORAZINE [Concomitant]
     Dates: start: 19980412
  11. ZYPREXA [Concomitant]
  12. ASPIRIN [Concomitant]
     Dates: start: 20050927
  13. PAXIL [Concomitant]
     Dates: start: 19980412
  14. HEPARIN [Concomitant]
     Dosage: 5000 UNITS/ML
     Dates: start: 20050927
  15. CARBAMAZEPINE [Concomitant]
     Dates: start: 20020603
  16. LIPITOR [Concomitant]
     Dates: start: 20020603
  17. PREDNISONE [Concomitant]
     Dates: start: 20020207

REACTIONS (5)
  - DIABETES MELLITUS [None]
  - DIABETIC NEUROPATHY [None]
  - PANCREATIC PSEUDOCYST [None]
  - PANCREATITIS [None]
  - SUICIDAL BEHAVIOUR [None]
